FAERS Safety Report 6306667-5 (Version None)
Quarter: 2009Q3

REPORT INFORMATION
  Report Type: 
  Country: None (occurrence: None)
  Receive Date: 20090812
  Receipt Date: 20090804
  Transmission Date: 20100115
  Serious: Yes (Other)
  Sender: FDA-Public Use
  Company Number: US-JNJFOC-20090703304

PATIENT
  Sex: Female
  Weight: 103.87 kg

DRUGS (5)
  1. REMICADE [Suspect]
     Indication: SERONEGATIVE ARTHRITIS
     Route: 042
  2. METHOTREXATE [Concomitant]
     Indication: POLYARTHRITIS
     Route: 065
  3. ASPIRIN [Concomitant]
  4. SKELAXIN [Concomitant]
  5. VALIUM [Concomitant]
     Indication: ANXIETY

REACTIONS (1)
  - NOCARDIOSIS [None]
